FAERS Safety Report 9403653 (Version 1)
Quarter: 2013Q3

REPORT INFORMATION
  Report Type: Spontaneous
  Country: FR (occurrence: FR)
  Receive Date: 20130717
  Receipt Date: 20130717
  Transmission Date: 20140515
  Serious: Yes (Death, Other)
  Sender: FDA-Public Use
  Company Number: 2013SP005301

PATIENT
  Age: 81 Year
  Sex: Male

DRUGS (14)
  1. VANCOMYCIN [Suspect]
     Indication: ENDOCARDITIS
     Route: 042
     Dates: start: 20130530, end: 20130605
  2. EUPANTOL [Suspect]
     Indication: PRODUCT USED FOR UNKNOWN INDICATION
     Route: 048
     Dates: start: 20130525
  3. GENTAMICIN [Suspect]
     Indication: ENDOCARDITIS
     Route: 042
     Dates: start: 20130530, end: 20130605
  4. RIFAMPICIN [Suspect]
     Indication: PRODUCT USED FOR UNKNOWN INDICATION
     Dates: start: 20130531, end: 20130605
  5. KALEORID [Concomitant]
  6. PERINDOPRIL [Concomitant]
  7. NEBILOX [Concomitant]
  8. TRAMADOL HYDROCHLORIDE [Concomitant]
  9. DAFALGAN [Concomitant]
  10. ENOXAPARIN [Concomitant]
     Dates: start: 20130527, end: 201306
  11. ALLOPURINOL [Concomitant]
     Dates: start: 20130528, end: 201306
  12. KARDEGIC [Concomitant]
  13. SPIRIVA [Concomitant]
  14. FUROSEMIDE [Concomitant]

REACTIONS (5)
  - Nephropathy toxic [Fatal]
  - Renal failure [Fatal]
  - Renal tubular necrosis [Fatal]
  - Rash [Unknown]
  - Multi-organ failure [Fatal]
